FAERS Safety Report 8257672-3 (Version None)
Quarter: 2012Q2

REPORT INFORMATION
  Report Type: 
  Country: None (occurrence: None)
  Receive Date: 20120403
  Receipt Date: 20120321
  Transmission Date: 20120825
  Serious: Yes (Disabling)
  Sender: FDA-Public Use
  Company Number: JP-ROCHE-1052845

PATIENT
  Sex: Female

DRUGS (6)
  1. RHEUMATREX [Concomitant]
     Indication: RHEUMATOID ARTHRITIS
     Route: 048
     Dates: start: 20020320, end: 20090826
  2. PREDNISOLONE [Concomitant]
     Route: 048
     Dates: start: 20080819, end: 20090826
  3. ACTEMRA [Suspect]
     Dosage: DOSAGE IS UNCERTAIN.
     Route: 041
  4. ACTEMRA [Suspect]
     Indication: RHEUMATOID ARTHRITIS
     Route: 041
     Dates: start: 20090225, end: 20110309
  5. VOLTAREN [Concomitant]
     Indication: RHEUMATOID ARTHRITIS
     Route: 054
     Dates: start: 20020401, end: 20090826
  6. PREDNISOLONE [Concomitant]
     Indication: RHEUMATOID ARTHRITIS
     Route: 048
     Dates: start: 20001011, end: 20040815

REACTIONS (4)
  - SKIN ULCER [None]
  - INFECTION [None]
  - FOOT AMPUTATION [None]
  - RASH [None]
